FAERS Safety Report 5587286-5 (Version None)
Quarter: 2008Q1

REPORT INFORMATION
  Report Type: 
  Country: None (occurrence: None)
  Receive Date: 20080110
  Receipt Date: 20080103
  Transmission Date: 20080703
  Serious: Yes (Other)
  Sender: FDA-Public Use
  Company Number: FR-PFIZER INC-2007107124

PATIENT
  Age: 60 Year
  Sex: Male

DRUGS (2)
  1. SUTENT [Suspect]
     Indication: RENAL CANCER METASTATIC
     Dosage: DAILY DOSE:50MG
  2. SUTENT [Suspect]
     Dosage: DAILY DOSE:37.5MG

REACTIONS (4)
  - HYPOALBUMINAEMIA [None]
  - HYPONATRAEMIA [None]
  - OEDEMA PERIPHERAL [None]
  - WEIGHT INCREASED [None]
